FAERS Safety Report 6420386-6 (Version None)
Quarter: 2009Q4

REPORT INFORMATION
  Report Type: 
  Country: None (occurrence: None)
  Receive Date: 20091021
  Receipt Date: 20090803
  Transmission Date: 20100525
  Serious: No
  Sender: FDA-Public Use
  Company Number: ALL1-2009-02155

PATIENT
  Age: 39 Year
  Sex: Female
  Weight: 81.6 kg

DRUGS (4)
  1. VYVANSE [Suspect]
     Indication: ATTENTION DEFICIT/HYPERACTIVITY DISORDER
     Dosage: 30 MG, 1X/DAY:QD, ORAL ; 50 MG, 1X/DAY:QD, ORAL : 70 MG, 1X/DAY:QD, ORAL : 60 MG, 1X/DAY:QD, ORAL
     Route: 048
     Dates: start: 20080101, end: 20080101
  2. VYVANSE [Suspect]
     Indication: ATTENTION DEFICIT/HYPERACTIVITY DISORDER
     Dosage: 30 MG, 1X/DAY:QD, ORAL ; 50 MG, 1X/DAY:QD, ORAL : 70 MG, 1X/DAY:QD, ORAL : 60 MG, 1X/DAY:QD, ORAL
     Route: 048
     Dates: start: 20080101, end: 20090701
  3. VYVANSE [Suspect]
     Indication: ATTENTION DEFICIT/HYPERACTIVITY DISORDER
     Dosage: 30 MG, 1X/DAY:QD, ORAL ; 50 MG, 1X/DAY:QD, ORAL : 70 MG, 1X/DAY:QD, ORAL : 60 MG, 1X/DAY:QD, ORAL
     Route: 048
     Dates: start: 20090701
  4. CYMBALTA [Concomitant]

REACTIONS (2)
  - FEELING JITTERY [None]
  - MENOPAUSAL SYMPTOMS [None]
